FAERS Safety Report 13094410 (Version 2)
Quarter: 2017Q1

REPORT INFORMATION
  Report Type: Spontaneous
  Country: US (occurrence: US)
  Receive Date: 20170106
  Receipt Date: 20170209
  Transmission Date: 20170428
  Serious: No
  Sender: FDA-Public Use
  Company Number: US-PFIZER INC-2017006361

PATIENT
  Age: 57 Year
  Sex: Female

DRUGS (7)
  1. LYRICA [Suspect]
     Active Substance: PREGABALIN
     Dosage: 3 DF, DAILY (TWO CAPSULES IN THE MORNING, AND TWO CAPSULES IN THE EVENING)
     Dates: end: 201611
  2. LYRICA [Suspect]
     Active Substance: PREGABALIN
     Indication: PAIN
     Dosage: 1 DF, 2X/DAY (ONE CAPSULE IN THE MORNING AND TWO CAPSULES IN THE EVENING)
  3. LYRICA [Suspect]
     Active Substance: PREGABALIN
     Indication: NEURALGIA
     Dosage: 3 DF, DAILY (TWO CAPSULES IN THE MORNING, AND TWO CAPSULES IN THE EVENING)
  4. LYRICA [Suspect]
     Active Substance: PREGABALIN
     Dosage: 2 DF, 2X/DAY (TWO CAPSULES IN THE MORNING, AND TWO CAPSULES IN THE EVENING)
  5. LYRICA [Suspect]
     Active Substance: PREGABALIN
     Dosage: 150 MG, DAILY (50 MG AM, 100 MG PM)
     Dates: start: 20170113
  6. IBUPROFEN. [Concomitant]
     Active Substance: IBUPROFEN
     Indication: PAIN
     Dosage: 400-800 MG, AS NEEDED
  7. LYRICA [Suspect]
     Active Substance: PREGABALIN
     Indication: TRIGEMINAL NEURALGIA
     Dosage: 1 DF, 1X/DAY IN THE MORNING
     Route: 048
     Dates: start: 201610

REACTIONS (1)
  - Drug ineffective [Unknown]
